FAERS Safety Report 13447730 (Version 3)
Quarter: 2017Q2

REPORT INFORMATION
  Report Type: Spontaneous
  Country: US (occurrence: US)
  Receive Date: 20170417
  Receipt Date: 20170614
  Transmission Date: 20170830
  Serious: No
  Sender: FDA-Public Use
  Company Number: US-GLAXOSMITHKLINE-US2017GSK054055

PATIENT
  Sex: Male
  Weight: 71.66 kg

DRUGS (1)
  1. VENTOLIN HFA [Suspect]
     Active Substance: ALBUTEROL SULFATE
     Indication: ASTHMA
     Dosage: 2 PUFF(S), Q6H PRN
     Route: 048
     Dates: start: 20141209

REACTIONS (1)
  - Intercepted drug dispensing error [Unknown]
